FAERS Safety Report 19209319 (Version 2)
Quarter: 2021Q3

REPORT INFORMATION
  Report Type: Spontaneous
  Country: US (occurrence: US)
  Receive Date: 20210503
  Receipt Date: 20210901
  Transmission Date: 20211014
  Serious: Yes (Disabling, Other)
  Sender: FDA-Public Use
  Company Number: US-PFIZER INC-2021361706

PATIENT
  Age: 65 Year
  Sex: Female
  Weight: 57.61 kg

DRUGS (20)
  1. MEDROL [Suspect]
     Active Substance: METHYLPREDNISOLONE
     Indication: SYSTEMIC LUPUS ERYTHEMATOSUS
     Dosage: SHORT?TERM INCREASE OF THE MEDROL DOSE
  2. MEDROL [Suspect]
     Active Substance: METHYLPREDNISOLONE
     Dosage: 6 MG
     Dates: start: 20210314
  3. ALBUTEROL HFA [Concomitant]
     Active Substance: ALBUTEROL SULFATE
     Indication: ASTHMA
     Dosage: 180 UG, AS NEEDED
  4. BENADRYL [Concomitant]
     Active Substance: DIPHENHYDRAMINE HYDROCHLORIDE
     Indication: HYPERSENSITIVITY
     Dosage: 12.5 MG
     Route: 048
     Dates: start: 2005
  5. XANAX [Concomitant]
     Active Substance: ALPRAZOLAM
     Indication: GASTRIC DISORDER
  6. MEDROL [Suspect]
     Active Substance: METHYLPREDNISOLONE
     Dosage: 2 MG
  7. SYNTHROID [Concomitant]
     Active Substance: LEVOTHYROXINE SODIUM
     Indication: HYPOTHYROIDISM
     Dosage: 50 UG, 1X/DAY
     Route: 048
     Dates: start: 2006
  8. OMEPRAZOLE. [Concomitant]
     Active Substance: OMEPRAZOLE
     Indication: GASTROOESOPHAGEAL REFLUX DISEASE
     Dosage: 20 MG, 2X/DAY
     Route: 048
  9. CLARITINE [Concomitant]
     Active Substance: LORATADINE
     Indication: HYPERSENSITIVITY
     Dosage: 10 MG, DAILY
     Route: 048
  10. MEDROL [Suspect]
     Active Substance: METHYLPREDNISOLONE
     Dosage: 8 MG
     Dates: start: 20210311, end: 20210313
  11. ATENOLOL. [Concomitant]
     Active Substance: ATENOLOL
     Indication: SYNCOPE
     Dosage: 125 MG, DAILY (EVERY NIGHT AT BEDTIME)
     Route: 048
  12. PROAIR HFA [Concomitant]
     Active Substance: ALBUTEROL SULFATE
     Indication: ASTHMA
     Dosage: UNK UNK, AS NEEDED
     Route: 048
     Dates: start: 2019
  13. TOZINAMERAN. [Suspect]
     Active Substance: TOZINAMERAN
     Indication: COVID-19 IMMUNISATION
     Dosage: DOSE 1, SINGLE
     Route: 030
     Dates: start: 20210307, end: 20210307
  14. BECLOMETHASONE [Concomitant]
     Active Substance: BECLOMETHASONE
     Indication: ASTHMA
     Dosage: UNK, 2X/DAY (DURING ALLERGEN EPISODES)
     Route: 048
     Dates: start: 2019
  15. MINALAX [Concomitant]
     Indication: IRRITABLE BOWEL SYNDROME
     Dosage: 17 G, DAILY
     Route: 048
     Dates: start: 2001
  16. METHYLPREDNISOLONE. [Concomitant]
     Active Substance: METHYLPREDNISOLONE
     Indication: SYSTEMIC LUPUS ERYTHEMATOSUS
     Dosage: 4 MG, DAILY (4MG TABLET HALF DAILY UPTO 8 MG)
     Route: 048
     Dates: start: 2016
  17. XANAX [Concomitant]
     Active Substance: ALPRAZOLAM
     Indication: POST-TRAUMATIC STRESS DISORDER
     Dosage: 0.25 MG, AS NEEDED (HALF TABLET QHS/GAS + TUMS AS NEEDED)
     Route: 048
     Dates: start: 201905
  18. MEDROL [Suspect]
     Active Substance: METHYLPREDNISOLONE
     Dosage: 6 MG
     Dates: end: 20210310
  19. TYLENOL [Concomitant]
     Active Substance: ACETAMINOPHEN
     Dosage: 325 MG
  20. PROBIOTICS [Concomitant]
     Active Substance: PROBIOTICS NOS
     Indication: DYSBIOSIS
     Dosage: UNK (1 CAPSULE)
     Route: 048
     Dates: start: 2019

REACTIONS (40)
  - Paraesthesia oral [Recovered/Resolved]
  - Nephritis [Unknown]
  - Acute stress disorder [Unknown]
  - Tachycardia [Unknown]
  - Fatigue [Unknown]
  - Cognitive disorder [Unknown]
  - Swollen tongue [Recovering/Resolving]
  - Bone pain [Recovered/Resolved]
  - Angina pectoris [Unknown]
  - Eye pruritus [Recovering/Resolving]
  - Diarrhoea [Unknown]
  - Nausea [Unknown]
  - Oxygen saturation decreased [Unknown]
  - Blood urea increased [Unknown]
  - Arthralgia [Unknown]
  - Paraesthesia [Recovered/Resolved]
  - Tongue oedema [Unknown]
  - Visual brightness [Unknown]
  - Throat tightness [Recovered/Resolved with Sequelae]
  - Systemic inflammatory response syndrome [Unknown]
  - Ocular hyperaemia [Unknown]
  - Rash pruritic [Recovered/Resolved]
  - Oral mucosal eruption [Unknown]
  - Retinal detachment [Unknown]
  - Cough [Unknown]
  - Palpitations [Unknown]
  - Vitreous floaters [Unknown]
  - Headache [Unknown]
  - Erythema [Recovered/Resolved]
  - Kawasaki^s disease [Unknown]
  - Glossitis [Unknown]
  - Renal failure [Unknown]
  - Dysphonia [Unknown]
  - Rhinorrhoea [Unknown]
  - Glomerular filtration rate decreased [Unknown]
  - Flank pain [Unknown]
  - Dyspnoea [Recovered/Resolved]
  - Cardiac flutter [Unknown]
  - Pharyngeal disorder [Unknown]
  - Abdominal pain [Unknown]

NARRATIVE: CASE EVENT DATE: 2021
